FAERS Safety Report 5175364-4 (Version None)
Quarter: 2006Q4

REPORT INFORMATION
  Report Type: 
  Country: None (occurrence: None)
  Receive Date: 20061215
  Receipt Date: 20061204
  Transmission Date: 20070319
  Serious: Yes (Hospitalization, Other)
  Sender: FDA-Public Use
  Company Number: PHRM2006FR03221

PATIENT
  Age: 69 Year
  Sex: Male
  Weight: 126 kg

DRUGS (2)
  1. BIPRETERAX [Suspect]
     Dosage: UNK, UNK
     Route: 048
     Dates: end: 20060130
  2. VOLTAREN [Suspect]
     Indication: ERYSIPELAS
     Dosage: UNK, UNK
     Route: 048
     Dates: start: 20060115, end: 20060130

REACTIONS (7)
  - ACCIDENTAL OVERDOSE [None]
  - BLOOD CREATININE INCREASED [None]
  - BLOOD POTASSIUM DECREASED [None]
  - BLOOD SODIUM DECREASED [None]
  - DRUG INTERACTION [None]
  - FLUID REPLACEMENT [None]
  - RENAL FAILURE ACUTE [None]
